FAERS Safety Report 7060286-4 (Version None)
Quarter: 2010Q4

REPORT INFORMATION
  Report Type: 
  Country: None (occurrence: None)
  Receive Date: 20101025
  Receipt Date: 20101020
  Transmission Date: 20110411
  Serious: Yes (Hospitalization)
  Sender: FDA-Public Use
  Company Number: A0789900A

PATIENT
  Age: 51 Year
  Sex: Male
  Weight: 104.5 kg

DRUGS (7)
  1. AVANDIA [Suspect]
     Dosage: 4MG TWICE PER DAY
     Route: 048
     Dates: start: 20000301, end: 20050401
  2. GLUCOPHAGE [Concomitant]
  3. PRILOSEC [Concomitant]
  4. GLUCOTROL [Concomitant]
  5. ATORVASTATIN [Concomitant]
  6. ENALAPRIL MALEATE [Concomitant]
  7. TOPROL-XL [Concomitant]

REACTIONS (3)
  - CARDIAC FAILURE CONGESTIVE [None]
  - CORONARY ARTERY DISEASE [None]
  - MYOCARDIAL INFARCTION [None]
